FAERS Safety Report 7103820-8 (Version None)
Quarter: 2010Q4

REPORT INFORMATION
  Report Type: 
  Country: None (occurrence: None)
  Receive Date: 20101115
  Receipt Date: 20101102
  Transmission Date: 20110411
  Serious: Yes (Other)
  Sender: FDA-Public Use
  Company Number: US-ELI_LILLY_AND_COMPANY-US201009006325

PATIENT
  Sex: Male

DRUGS (3)
  1. ZYPREXA [Suspect]
     Indication: AUTISM
     Dosage: 5 MG, 2/D
     Route: 048
     Dates: end: 20100914
  2. ZYPREXA [Suspect]
     Dosage: 10 MG, DAILY (1/D)
     Route: 048
     Dates: start: 20100915, end: 20100920
  3. VALIUM [Concomitant]
     Dosage: 5 MG, UNK
     Dates: start: 20100405

REACTIONS (3)
  - DYSPNOEA [None]
  - OFF LABEL USE [None]
  - SWOLLEN TONGUE [None]
